FAERS Safety Report 8727166 (Version 2)
Quarter: 2012Q4

REPORT INFORMATION
  Report Type: 
  Country: US (occurrence: US)
  Receive Date: 20120816
  Receipt Date: 20121012
  Transmission Date: 20130627
  Serious: Yes (Other)
  Sender: FDA-Public Use
  Company Number: US-ASTRAZENECA-2012SE55873

PATIENT
  Age: 80 Year
  Sex: Male
  Weight: 106.5 kg

DRUGS (12)
  1. SYMBICORT PMDI [Suspect]
     Dosage: 160/4.5 mcg , 1 INH IH BID
     Route: 055
  2. LISINOPRIL [Suspect]
     Route: 048
     Dates: start: 20100529
  3. OMEPRAZOLE [Suspect]
     Route: 048
  4. FELODIPINE [Concomitant]
  5. ACIPHEX [Concomitant]
  6. ASPIRIN [Concomitant]
     Dosage: 81 MG
  7. ASPIRIN [Concomitant]
     Route: 048
  8. ALBUTEROL SULFATE [Concomitant]
     Dosage: 90 MCG HFA INH 1 PUFF IN PRN
  9. ATORVASTATIN [Concomitant]
     Route: 048
  10. ENOXAPARIN [Concomitant]
     Dosage: 1000 MG/ML SYR, 100 MG Q 12H
     Route: 058
  11. MULTIVITAMINS [Concomitant]
     Route: 048
  12. WARFARIN [Concomitant]
     Route: 048

REACTIONS (39)
  - Cerebrovascular accident [Unknown]
  - Loss of consciousness [Unknown]
  - Road traffic accident [Unknown]
  - Chronic obstructive pulmonary disease [Unknown]
  - Asthma [Unknown]
  - Bronchitis chronic [Unknown]
  - Atrioventricular block second degree [Unknown]
  - Prostate cancer [Unknown]
  - Hypertensive heart disease [Unknown]
  - Arteriosclerosis [Unknown]
  - Acute myocardial infarction [Unknown]
  - Brain injury [Unknown]
  - Embolism [Unknown]
  - Aortic valve disease [Unknown]
  - Embolism [Unknown]
  - Myocardial ischaemia [Unknown]
  - Coronary artery disease [Unknown]
  - Flushing [Unknown]
  - Dizziness [Unknown]
  - Disorientation [Unknown]
  - Somnolence [Unknown]
  - Palpitations [Unknown]
  - Cough [Unknown]
  - Amnesia [Unknown]
  - Neuropathy peripheral [Unknown]
  - Hypertension [Unknown]
  - Ventricular extrasystoles [Unknown]
  - Electrocardiogram ST segment abnormal [Unknown]
  - Electrocardiogram T wave abnormal [Unknown]
  - Nausea [Unknown]
  - Troponin increased [Unknown]
  - Supraventricular tachycardia [Unknown]
  - Left ventricular dysfunction [Unknown]
  - Dysarthria [Unknown]
  - Pulmonary granuloma [Unknown]
  - Atrial fibrillation [Unknown]
  - Dysarthria [Unknown]
  - Syncope [Unknown]
  - Atrioventricular block first degree [Unknown]
